FAERS Safety Report 12983667 (Version 1)
Quarter: 2016Q4

REPORT INFORMATION
  Report Type: Report from Study
  Country: CO (occurrence: CO)
  Receive Date: 20161129
  Receipt Date: 20161129
  Transmission Date: 20170207
  Serious: Yes (Death, Hospitalization)
  Sender: FDA-Public Use
  Company Number: PHHY2016CO157684

PATIENT
  Age: 24 Year
  Sex: Male
  Weight: 73.5 kg

DRUGS (2)
  1. TASIGNA [Suspect]
     Active Substance: NILOTINIB
     Dosage: 150 MG, BID
     Route: 048
     Dates: start: 20160819, end: 20161118
  2. TASIGNA [Suspect]
     Active Substance: NILOTINIB
     Indication: CHRONIC MYELOID LEUKAEMIA
     Dosage: 300 MG, BID (150 MG, TWO TABLETS EVERY 12 HOURS)
     Route: 048
     Dates: start: 20160818

REACTIONS (5)
  - Ischaemia [Unknown]
  - White blood cell count increased [Unknown]
  - Cardio-respiratory arrest [Fatal]
  - Influenza [Unknown]
  - Chronic myeloid leukaemia recurrent [Unknown]

NARRATIVE: CASE EVENT DATE: 20161119
